FAERS Safety Report 6741821-X (Version None)
Quarter: 2010Q2

REPORT INFORMATION
  Report Type: 
  Country: None (occurrence: None)
  Receive Date: 20100526
  Receipt Date: 20100519
  Transmission Date: 20101027
  Serious: Yes (Hospitalization)
  Sender: FDA-Public Use
  Company Number: A0723723A

PATIENT
  Age: 63 Year
  Sex: Male

DRUGS (1)
  1. AVANDIA [Suspect]
     Dosage: 8U PER DAY
     Dates: start: 20020819, end: 20070716

REACTIONS (5)
  - AMNESIA [None]
  - ANGER [None]
  - ASTHENIA [None]
  - DISTURBANCE IN ATTENTION [None]
  - MYOCARDIAL INFARCTION [None]
